FAERS Safety Report 21357811 (Version 2)
Quarter: 2022Q4

REPORT INFORMATION
  Report Type: Spontaneous
  Country: US (occurrence: US)
  Receive Date: 20220921
  Receipt Date: 20221010
  Transmission Date: 20230112
  Serious: Yes (Other)
  Sender: FDA-Public Use
  Company Number: None

PATIENT
  Age: 73 Year
  Sex: Female
  Weight: 115 kg

DRUGS (6)
  1. CROMOLYN SODIUM [Suspect]
     Active Substance: CROMOLYN SODIUM
     Indication: Nervous system disorder prophylaxis
     Route: 048
     Dates: start: 202208, end: 20220906
  2. CROMOLYN SODIUM [Suspect]
     Active Substance: CROMOLYN SODIUM
  3. CROMOLYN SODIUM [Suspect]
     Active Substance: CROMOLYN SODIUM
  4. CARBIDOPA [Concomitant]
     Active Substance: CARBIDOPA
     Indication: Parkinson^s disease
     Route: 065
  5. LEVODOPA [Concomitant]
     Active Substance: LEVODOPA
     Indication: Parkinson^s disease
     Route: 065
  6. AZILECT [Concomitant]
     Active Substance: RASAGILINE MESYLATE
     Indication: Parkinson^s disease
     Route: 065

REACTIONS (9)
  - Hypersensitivity [Recovering/Resolving]
  - Dyspnoea [Recovering/Resolving]
  - Throat tightness [Recovering/Resolving]
  - Dysphagia [Recovering/Resolving]
  - Tremor [Recovering/Resolving]
  - Condition aggravated [Recovering/Resolving]
  - Dysgeusia [Recovering/Resolving]
  - Product taste abnormal [Recovering/Resolving]
  - Product use in unapproved indication [Unknown]

NARRATIVE: CASE EVENT DATE: 20220801
